FAERS Safety Report 4584885-4 (Version None)
Quarter: 2005Q1

REPORT INFORMATION
  Report Type: 
  Country: None (occurrence: None)
  Receive Date: 20050217
  Receipt Date: 20041105
  Transmission Date: 20050727
  Serious: No
  Sender: FDA-Public Use
  Company Number: US-GLAXOSMITHKLINE-A0532851A

PATIENT
  Age: 11 Year
  Sex: Male

DRUGS (4)
  1. WELLBUTRIN XL [Suspect]
     Indication: ATTENTION DEFICIT/HYPERACTIVITY DISORDER
     Dosage: 300MG PER DAY
     Route: 048
     Dates: start: 20041022
  2. DEPAKOTE [Concomitant]
  3. RISPERDAL [Concomitant]
  4. RITALIN [Concomitant]

REACTIONS (1)
  - NIGHTMARE [None]
